FAERS Safety Report 6217132-8 (Version None)
Quarter: 2009Q2

REPORT INFORMATION
  Report Type: 
  Country: None (occurrence: None)
  Receive Date: 20090606
  Receipt Date: 20090525
  Transmission Date: 20091009
  Serious: Yes (Other)
  Sender: FDA-Public Use
  Company Number: SE-PFIZER INC-2009195605

PATIENT
  Age: 53 Year

DRUGS (3)
  1. LYRICA [Suspect]
     Indication: ANXIETY DISORDER
     Dosage: 50 MG, 2X/DAY
     Route: 065
     Dates: start: 20090406
  2. EFFEXOR [Concomitant]
     Dosage: UNK
     Route: 065
  3. BETA BLOCKING AGENTS [Concomitant]
     Indication: HYPERTENSION
     Dosage: UNK
     Route: 065

REACTIONS (1)
  - BLOOD PRESSURE INCREASED [None]
